FAERS Safety Report 7051244-4 (Version None)
Quarter: 2010Q4

REPORT INFORMATION
  Report Type: 
  Country: None (occurrence: None)
  Receive Date: 20101012
  Receipt Date: 20101001
  Transmission Date: 20110411
  Serious: Yes (Other)
  Sender: FDA-Public Use
  Company Number: AVE_02001_2010

PATIENT
  Age: 53 Year
  Sex: Female
  Weight: 59.8748 kg

DRUGS (2)
  1. NICOTINE [Suspect]
     Indication: SMOKING CESSATION THERAPY
     Dosage: (21 MG QD, USED ONE PATCH, TRANSDERMAL)
     Route: 062
     Dates: start: 20100901, end: 20100901
  2. NICOTINE [Suspect]
     Indication: SMOKING CESSATION THERAPY
     Dosage: (4 MG, CHEWED ONE PIECE OF GUM.)
     Dates: start: 20100901, end: 20100901

REACTIONS (7)
  - ALCOHOL USE [None]
  - CONDITION AGGRAVATED [None]
  - DEPRESSION [None]
  - MENTAL IMPAIRMENT [None]
  - PRODUCT ADHESION ISSUE [None]
  - SUICIDAL IDEATION [None]
  - WRONG TECHNIQUE IN DRUG USAGE PROCESS [None]
